FAERS Safety Report 8955615 (Version 1)
Quarter: 2012Q4

REPORT INFORMATION
  Report Type: 
  Country: CA (occurrence: CA)
  Receive Date: 20121207
  Receipt Date: 20121207
  Transmission Date: 20130627
  Serious: Yes (Other)
  Sender: FDA-Public Use
  Company Number: CA-ROCHE-1162551

PATIENT
  Sex: Female

DRUGS (2)
  1. XOLAIR [Suspect]
     Indication: PRODUCT USED FOR UNKNOWN INDICATION
     Route: 065
     Dates: start: 20051115
  2. VENTOLIN [Concomitant]

REACTIONS (4)
  - Asthma [Unknown]
  - Hypersensitivity [Unknown]
  - Fatigue [Unknown]
  - Dyspnoea [Unknown]
